FAERS Safety Report 6275572-5 (Version None)
Quarter: 2009Q3

REPORT INFORMATION
  Report Type: 
  Country: None (occurrence: None)
  Receive Date: 20090721
  Receipt Date: 20090709
  Transmission Date: 20100115
  Serious: Yes (Hospitalization)
  Sender: FDA-Public Use
  Company Number: US-JNJFOC-20090703614

PATIENT
  Sex: Female
  Weight: 48 kg

DRUGS (3)
  1. INFLIXIMAB [Suspect]
     Indication: CROHN'S DISEASE
     Route: 042
  2. BUDESONIDE [Concomitant]
  3. PREDNISONE TAB [Concomitant]

REACTIONS (1)
  - CROHN'S DISEASE [None]
